FAERS Safety Report 19034070 (Version 1)
Quarter: 2021Q1

REPORT INFORMATION
  Report Type: Spontaneous
  Country: US (occurrence: US)
  Receive Date: 20210319
  Receipt Date: 20210319
  Transmission Date: 20210420
  Serious: No
  Sender: FDA-Public Use
  Company Number: US-TEVA-2021-US-1888781

PATIENT
  Age: 33 Year
  Sex: Female

DRUGS (6)
  1. INVEGA 1.5 MG TAB ER 24 [Concomitant]
  2. ZYPREXA 10 MG TABLET [Concomitant]
  3. AUSTEDO [Suspect]
     Active Substance: DEUTETRABENAZINE
     Indication: DYSKINESIA
     Dosage: 12 MILLIGRAM DAILY;
     Route: 048
     Dates: start: 20210225
  4. DEPAKOTE 125 MG TABLET DR [Concomitant]
  5. TOPAMAX 100 MG TABLET [Concomitant]
  6. METFORMIN ER GASTRIC [Concomitant]

REACTIONS (4)
  - Somnolence [Unknown]
  - Rash [Unknown]
  - Sinus congestion [Unknown]
  - Nightmare [Unknown]

NARRATIVE: CASE EVENT DATE: 20210226
